FAERS Safety Report 8765171 (Version 5)
Quarter: 2013Q1

REPORT INFORMATION
  Report Type: Spontaneous
  Country: US (occurrence: US)
  Receive Date: 20120903
  Receipt Date: 20130116
  Transmission Date: 20140127
  Serious: Yes (Death, Hospitalization, Other)
  Sender: FDA-Public Use
  Company Number: US-009507513-1208USA010751

PATIENT
  Age: 41 Year
  Sex: Male

DRUGS (3)
  1. VICTRELIS [Suspect]
     Indication: HEPATITIS C
     Dosage: 200 MG, QD
     Route: 048
     Dates: start: 20120602
  2. REBETOL [Suspect]
     Indication: HEPATITIS C
     Route: 048
  3. PEGINTRON [Suspect]
     Indication: HEPATITIS C

REACTIONS (3)
  - Completed suicide [Fatal]
  - Depression [Unknown]
  - Affect lability [Unknown]
